FAERS Safety Report 23800903 (Version 4)
Quarter: 2024Q3

REPORT INFORMATION
  Report Type: Spontaneous
  Country: DE (occurrence: None)
  Receive Date: 20240430
  Receipt Date: 20240716
  Transmission Date: 20241017
  Serious: Yes (Other)
  Sender: ASTRAZENECA
  Company Number: 2024A100422

PATIENT

DRUGS (4)
  1. DURVALUMAB [Suspect]
     Active Substance: DURVALUMAB
  2. TREMELIMUMAB [Suspect]
     Active Substance: TREMELIMUMAB
     Route: 042
  3. CARBOPLATIN [Concomitant]
     Active Substance: CARBOPLATIN
  4. PACLITAXEL [Concomitant]
     Active Substance: PACLITAXEL

REACTIONS (12)
  - Pulmonary embolism [Unknown]
  - Bronchial carcinoma [Unknown]
  - Metastases to lymph nodes [Unknown]
  - Metastases to lung [Unknown]
  - Atelectasis [Unknown]
  - Lymphadenopathy mediastinal [Unknown]
  - Pericardial effusion [Unknown]
  - Metastases to spine [Unknown]
  - Metastatic neoplasm [Unknown]
  - Pleural effusion [Unknown]
  - Lung disorder [Unknown]
  - Off label use [Unknown]
